FAERS Safety Report 19967508 (Version 1)
Quarter: 2021Q4

REPORT INFORMATION
  Report Type: Spontaneous
  Country: US (occurrence: US)
  Receive Date: 20211015
  Receipt Date: 20211015
  Transmission Date: 20220303
  Serious: No
  Sender: FDA-Public Use
  Company Number: None

PATIENT
  Age: 43 Year
  Sex: Male
  Weight: 91 kg

DRUGS (1)
  1. REGEN-COV [Suspect]
     Active Substance: CASIRIVIMAB\IMDEVIMAB
     Route: 042
     Dates: start: 20211005, end: 20211005

REACTIONS (11)
  - Cough [None]
  - Dyspnoea [None]
  - Nausea [None]
  - Flushing [None]
  - Body temperature increased [None]
  - Oxygen saturation decreased [None]
  - Tachycardia [None]
  - Tachypnoea [None]
  - COVID-19 pneumonia [None]
  - Acute respiratory distress syndrome [None]
  - Hypoxia [None]

NARRATIVE: CASE EVENT DATE: 20211005
